FAERS Safety Report 10160887 (Version 1)
Quarter: 2014Q2

REPORT INFORMATION
  Report Type: Spontaneous
  Country: GB (occurrence: GB)
  Receive Date: 20140508
  Receipt Date: 20140508
  Transmission Date: 20141212
  Serious: Yes (Other)
  Sender: FDA-Public Use
  Company Number: GB-ALLERGAN-1408628US

PATIENT
  Age: 63 Year
  Sex: Female
  Weight: 70 kg

DRUGS (3)
  1. AZELAIC ACID UNK [Suspect]
     Indication: PRODUCT USED FOR UNKNOWN INDICATION
     Dosage: UNK
     Dates: start: 20140219
  2. CETIRIZINE [Concomitant]
     Dosage: UNK
     Dates: start: 20140414
  3. MINOCYCLINE [Concomitant]
     Dosage: UNK
     Dates: start: 20131015

REACTIONS (1)
  - Urticaria [Recovering/Resolving]
